FAERS Safety Report 25795525 (Version 2)
Quarter: 2025Q3

REPORT INFORMATION
  Report Type: Spontaneous
  Country: US (occurrence: None)
  Receive Date: 20250912
  Receipt Date: 20250924
  Transmission Date: 20251020
  Serious: Yes (Other)
  Sender: ENCUBE ETHICALS PVT. LTD.
  Company Number: US-Encube-002247

PATIENT
  Age: 18 Year
  Sex: Female

DRUGS (6)
  1. CLINDAMYCIN PHOSPHATE [Suspect]
     Active Substance: CLINDAMYCIN PHOSPHATE
     Indication: Rash morbilliform
     Dates: start: 20230401, end: 20230402
  2. CEFTRIAXONE [Concomitant]
     Active Substance: CEFTRIAXONE
  3. NAPROXEN [Concomitant]
     Active Substance: NAPROXEN
  4. DICLOXACILLIN [Concomitant]
     Active Substance: DICLOXACILLIN
     Indication: Rash morbilliform
  5. MICRODACYN [Concomitant]
     Indication: Rash morbilliform
  6. CLINDAMYCIN PHOSPHATE [Suspect]
     Active Substance: CLINDAMYCIN PHOSPHATE
     Indication: Rash morbilliform
     Route: 048
     Dates: start: 20230331, end: 20230401

REACTIONS (2)
  - Off label use [Unknown]
  - Acute generalised exanthematous pustulosis [Recovered/Resolved]

NARRATIVE: CASE EVENT DATE: 20230401
